FAERS Safety Report 13614385 (Version 10)
Quarter: 2020Q2

REPORT INFORMATION
  Report Type: Report from Study
  Country: CA (occurrence: CA)
  Receive Date: 20170606
  Receipt Date: 20200604
  Transmission Date: 20200713
  Serious: Yes (Hospitalization, Other)
  Sender: FDA-Public Use
  Company Number: CA-PFIZER INC-2017238563

PATIENT
  Age: 63 Year
  Sex: Female

DRUGS (22)
  1. ENTYVIO [Suspect]
     Active Substance: VEDOLIZUMAB
     Dosage: 300 MILLIGRAM, Q4WEEKS
     Route: 042
  2. PROPRANOLOL [Concomitant]
     Active Substance: PROPRANOLOL HYDROCHLORIDE
     Dosage: 10 MILLIGRAM, BID
     Dates: start: 2001
  3. QUESTRAN [Concomitant]
     Active Substance: CHOLESTYRAMINE
     Dosage: UNK
  4. DOXYCYCLINE. [Concomitant]
     Active Substance: DOXYCYCLINE
     Dosage: UNK
  5. INNOHEP [Concomitant]
     Active Substance: TINZAPARIN SODIUM
     Dosage: 14000 MILLIGRAM
     Dates: start: 2009
  6. ENTYVIO [Suspect]
     Active Substance: VEDOLIZUMAB
     Dosage: 300 MILLIGRAM, Q4WEEKS
     Route: 042
  7. ENTYVIO [Suspect]
     Active Substance: VEDOLIZUMAB
     Dosage: 300 MILLIGRAM, Q4WEEKS
     Route: 042
  8. METFORMIN [Concomitant]
     Active Substance: METFORMIN HYDROCHLORIDE
     Dosage: 500 MILLIGRAM, BID
     Dates: start: 201505
  9. ENTYVIO [Suspect]
     Active Substance: VEDOLIZUMAB
     Dosage: 300 MILLIGRAM, Q4WEEKS
     Route: 042
  10. IRON [Concomitant]
     Active Substance: IRON
     Dosage: UNK
     Route: 050
     Dates: start: 2006
  11. TYLENOL WITH CODEINE [Concomitant]
     Active Substance: ACETAMINOPHEN\CODEINE PHOSPHATE
     Dosage: UNK, BID
  12. LOMOTIL [Concomitant]
     Active Substance: ATROPINE SULFATE\DIPHENOXYLATE HYDROCHLORIDE
     Dosage: UNK, QD
  13. VITAMIN B12 [Concomitant]
     Active Substance: CYANOCOBALAMIN
     Dosage: UNK
     Route: 050
     Dates: start: 2006
  14. INFLIXIMAB [Concomitant]
     Active Substance: INFLIXIMAB
     Dosage: UNK, Q8HR
  15. REMICADE [Concomitant]
     Active Substance: INFLIXIMAB
     Dosage: UNK, Q8WEEKS
  16. PANTOLOC [Suspect]
     Active Substance: PANTOPRAZOLE SODIUM
     Dosage: 40 MILLIGRAM, QD
     Route: 048
     Dates: start: 1996
  17. ENTYVIO [Suspect]
     Active Substance: VEDOLIZUMAB
     Dosage: 300 MILLIGRAM, Q4WEEKS
     Route: 042
  18. ENTYVIO [Suspect]
     Active Substance: VEDOLIZUMAB
     Dosage: 300 MILLIGRAM, Q4WEEKS
     Route: 042
  19. INFLIXIMAB [Concomitant]
     Active Substance: INFLIXIMAB
     Dosage: UNK
  20. ADALIMUMAB [Concomitant]
     Active Substance: ADALIMUMAB
     Dosage: UNK
  21. ENTYVIO [Suspect]
     Active Substance: VEDOLIZUMAB
     Indication: CROHN^S DISEASE
     Dosage: 300 MILLIGRAM, Q4WEEKS
     Route: 042
     Dates: start: 20160818
  22. ADALIMUMAB [Concomitant]
     Active Substance: ADALIMUMAB
     Dosage: 40 MG, Q2WEEKS

REACTIONS (8)
  - Dizziness [Unknown]
  - Gastrointestinal obstruction [Recovered/Resolved]
  - Crohn^s disease [Not Recovered/Not Resolved]
  - Flushing [Unknown]
  - Faecal calprotectin increased [Unknown]
  - Pelvic abscess [Unknown]
  - Cystitis [Unknown]
  - Abdominal pain [Recovering/Resolving]

NARRATIVE: CASE EVENT DATE: 20180726
